FAERS Safety Report 8030540-8 (Version None)
Quarter: 2011Q4

REPORT INFORMATION
  Report Type: 
  Country: None (occurrence: None)
  Receive Date: 20111130
  Receipt Date: 20110524
  Transmission Date: 20120403
  Serious: Yes (Hospitalization, Other)
  Sender: FDA-Public Use
  Company Number: US200910004071

PATIENT
  Sex: Male
  Weight: 88.9 kg

DRUGS (6)
  1. JANUVIA [Concomitant]
  2. EXENATIDE UNK STRENGTH PEN, DISPOSABLE DEVICE (EXENATIDE PEN (UNKNOWN [Concomitant]
  3. DIOVAN [Concomitant]
  4. BYETTA [Suspect]
     Dosage: SUBCUTANEOUS ; 10 UG, BID, SUBCUTANEOUS
     Route: 058
     Dates: start: 20070101
  5. METFORMIN HCL [Concomitant]
  6. VIAGRA [Concomitant]

REACTIONS (8)
  - NAUSEA [None]
  - VOMITING [None]
  - WEIGHT DECREASED [None]
  - RENAL DISORDER [None]
  - ABDOMINAL PAIN [None]
  - PANCREATITIS [None]
  - FATIGUE [None]
  - GALLBLADDER DISORDER [None]
